FAERS Safety Report 5659491-0 (Version None)
Quarter: 2008Q1

REPORT INFORMATION
  Report Type: 
  Country: None (occurrence: None)
  Receive Date: 20080311
  Receipt Date: 20080227
  Transmission Date: 20080703
  Serious: Yes (Hospitalization)
  Sender: FDA-Public Use
  Company Number: PHBS2008IN02972

PATIENT
  Age: 26 Year
  Sex: Male

DRUGS (3)
  1. CLOZAPINE [Suspect]
     Indication: SCHIZOPHRENIA, PARANOID TYPE
     Dosage: UP TO 300 MG/DAY
     Dates: start: 20070301
  2. CLOZAPINE [Suspect]
     Dosage: UP TO 400 MG/DAY
     Dates: start: 20071101
  3. CLOZAPINE [Suspect]
     Dosage: 200 MG/DAY

REACTIONS (5)
  - DROP ATTACKS [None]
  - DYSKINESIA [None]
  - FALL [None]
  - MUSCULAR WEAKNESS [None]
  - MYOCLONUS [None]
